FAERS Safety Report 6053052-X (Version None)
Quarter: 2009Q1

REPORT INFORMATION
  Report Type: 
  Country: None (occurrence: None)
  Receive Date: 20090122
  Receipt Date: 20090112
  Transmission Date: 20090719
  Serious: Yes (Other)
  Sender: FDA-Public Use
  Company Number: 2008AP003372

PATIENT
  Age: 43 Year
  Sex: Female

DRUGS (17)
  1. TORSEMIDE [Suspect]
     Indication: ABDOMINAL DISTENSION
     Dosage: 60 MG; QD
  2. TORSEMIDE [Suspect]
     Indication: FATIGUE
     Dosage: 60 MG; QD
  3. WARFARIN SODIUM [Suspect]
     Indication: ATRIAL FIBRILLATION
     Dosage: 7.5 MG;QD, 5 MG;QD, 5 MG; QD
  4. WARFARIN SODIUM [Suspect]
     Indication: CARDIAC VALVE PROSTHESIS USER
     Dosage: 7.5 MG;QD, 5 MG;QD, 5 MG; QD
  5. WARFARIN SODIUM [Suspect]
     Indication: ATRIAL FIBRILLATION
     Dosage: 7.5 MG;QD, 5 MG;QD, 5 MG; QD
  6. WARFARIN SODIUM [Suspect]
     Indication: CARDIAC VALVE PROSTHESIS USER
     Dosage: 7.5 MG;QD, 5 MG;QD, 5 MG; QD
  7. WARFARIN SODIUM [Suspect]
     Indication: ATRIAL FIBRILLATION
     Dosage: 7.5 MG;QD, 5 MG;QD, 5 MG; QD
     Dates: start: 19930101
  8. WARFARIN SODIUM [Suspect]
     Indication: CARDIAC VALVE PROSTHESIS USER
     Dosage: 7.5 MG;QD, 5 MG;QD, 5 MG; QD
     Dates: start: 19930101
  9. DIGOXIN [Concomitant]
  10. CARVEDILOL [Concomitant]
  11. SPIRONOLACTONE [Concomitant]
  12. FUROSEMIDE [Concomitant]
  13. LISINOPRIL [Concomitant]
  14. ACETYLSALICYLIC ACID SRT [Concomitant]
  15. LEVOTHYROXINE SODIUM [Concomitant]
  16. ASCORBIC ACID [Concomitant]
  17. FERROUS SULFATE TAB [Concomitant]

REACTIONS (4)
  - DRUG INTERACTION [None]
  - EJECTION FRACTION DECREASED [None]
  - FAMILY STRESS [None]
  - INTERNATIONAL NORMALISED RATIO INCREASED [None]
